FAERS Safety Report 21961842 (Version 2)
Quarter: 2023Q1

REPORT INFORMATION
  Report Type: Spontaneous
  Country: GB (occurrence: GB)
  Receive Date: 20230207
  Receipt Date: 20230208
  Transmission Date: 20230418
  Serious: Yes (Hospitalization, Disabling)
  Sender: FDA-Public Use
  Company Number: GB-MHRA-MED-202302010815358850-ZVTDM

PATIENT
  Age: 44 Year
  Sex: Female

DRUGS (4)
  1. UPADACITINIB [Suspect]
     Active Substance: UPADACITINIB
     Indication: Colitis ulcerative
     Dosage: 45MG OD
     Route: 048
     Dates: end: 20221216
  2. AMOXICILLIN SODIUM [Suspect]
     Active Substance: AMOXICILLIN SODIUM
     Indication: Lower respiratory tract infection
     Route: 065
     Dates: start: 20221216, end: 20221222
  3. DOXYCYCLINE [Suspect]
     Active Substance: DOXYCYCLINE
     Indication: Lower respiratory tract infection
     Route: 065
     Dates: start: 20221223, end: 20221228
  4. PREDNISOLONE [Concomitant]
     Active Substance: PREDNISOLONE
     Indication: Colitis ulcerative

REACTIONS (4)
  - Left ventricular failure [Not Recovered/Not Resolved]
  - Pulmonary embolism [Recovering/Resolving]
  - Lower respiratory tract infection [Unknown]
  - Jaundice [Unknown]

NARRATIVE: CASE EVENT DATE: 20230104
